FAERS Safety Report 24771900 (Version 1)
Quarter: 2024Q4

REPORT INFORMATION
  Report Type: Spontaneous
  Country: US (occurrence: US)
  Receive Date: 20241224
  Receipt Date: 20241224
  Transmission Date: 20250114
  Serious: Yes (Other)
  Sender: BLUEPRINT MEDICINES
  Company Number: US-Blueprint Medicines Corporation-2024-AER-00005

PATIENT
  Age: 50 Year
  Sex: Female

DRUGS (2)
  1. AYVAKIT [Suspect]
     Active Substance: AVAPRITINIB
     Indication: Systemic mastocytosis
     Dates: start: 20240404
  2. AYVAKIT [Suspect]
     Active Substance: AVAPRITINIB

REACTIONS (4)
  - Angina pectoris [Recovering/Resolving]
  - Fatigue [Unknown]
  - Hypotension [Unknown]
  - Blood potassium decreased [Unknown]
